FAERS Safety Report 22017093 (Version 1)
Quarter: 2023Q1

REPORT INFORMATION
  Report Type: Spontaneous
  Country: ES (occurrence: ES)
  Receive Date: 20230221
  Receipt Date: 20230221
  Transmission Date: 20230418
  Serious: Yes (Life-Threatening, Other)
  Sender: FDA-Public Use
  Company Number: None

PATIENT
  Age: 52 Year
  Sex: Male
  Weight: 75 kg

DRUGS (5)
  1. LENALIDOMIDE [Suspect]
     Active Substance: LENALIDOMIDE
     Indication: Plasma cell myeloma
     Dosage: LENALIDOMIDA (8089A)
     Dates: start: 20200323, end: 20220131
  2. LENALIDOMIDE [Suspect]
     Active Substance: LENALIDOMIDE
     Dosage: LENALIDOMIDA (8089A)
     Dates: start: 20190506, end: 20200323
  3. ZOLEDRONIC ACID [Suspect]
     Active Substance: ZOLEDRONIC ACID
     Indication: Plasma cell myeloma
     Dosage: 8 MG PER YEAR IV (4MG DAYS 1 AND 28 OF EACH YEAR)   ,ACIDO ZOLEDRONICO (1251A)
     Route: 042
     Dates: start: 20190506
  4. DARZALEX [Suspect]
     Active Substance: DARATUMUMAB
     Indication: Plasma cell myeloma
     Dates: start: 20190506, end: 20220131
  5. VELCADE [Suspect]
     Active Substance: BORTEZOMIB
     Indication: Plasma cell myeloma
     Dosage: 2.5 MG SUBCUTANEOUSLY ON DAYS 1,4,8, AND 12 OF EACH 28-DAY CYCLE
     Route: 058
     Dates: start: 20190506, end: 20200305

REACTIONS (4)
  - Toxic skin eruption [Recovered/Resolved]
  - Lichenoid keratosis [Recovered/Resolved]
  - Cutaneous T-cell lymphoma [Unknown]
  - Pityriasis rubra pilaris [Recovered/Resolved]

NARRATIVE: CASE EVENT DATE: 20200403
